FAERS Safety Report 5736457-3 (Version None)
Quarter: 2008Q2

REPORT INFORMATION
  Report Type: 
  Country: None (occurrence: None)
  Receive Date: 20080513
  Receipt Date: 20080508
  Transmission Date: 20081010
  Serious: Yes (Hospitalization)
  Sender: FDA-Public Use
  Company Number: D0055163A

PATIENT
  Age: 54 Year
  Sex: Male
  Weight: 50 kg

DRUGS (4)
  1. AUGMENTIN '125' [Suspect]
     Indication: ABSCESS JAW
     Route: 042
     Dates: start: 20071011, end: 20071019
  2. NEXIUM [Concomitant]
     Route: 065
  3. PANCREATIC EXTRACT [Concomitant]
     Route: 065
  4. ANTIBIOTIC (UNSPECIFIED) [Concomitant]
     Route: 065

REACTIONS (3)
  - ERYTHEMA [None]
  - MYOCARDIAL INFARCTION [None]
  - PRURITUS [None]
